FAERS Safety Report 13550587 (Version 3)
Quarter: 2017Q2

REPORT INFORMATION
  Report Type: Spontaneous
  Country: FR (occurrence: FR)
  Receive Date: 20170516
  Receipt Date: 20170607
  Transmission Date: 20170830
  Serious: Yes (Hospitalization, Other)
  Sender: FDA-Public Use
  Company Number: FR-PFIZER INC-2017204677

PATIENT
  Age: 89 Year
  Sex: Male

DRUGS (9)
  1. IMOVANE [Suspect]
     Active Substance: ZOPICLONE
     Indication: INSOMNIA
     Dosage: 3.75 MG, 1X/DAY
     Route: 048
     Dates: start: 201702, end: 20170420
  2. EUPANTOL [Suspect]
     Active Substance: PANTOPRAZOLE SODIUM
     Indication: GASTROINTESTINAL ULCER
     Dosage: 40 MG, 1X/DAY
     Route: 048
     Dates: start: 201702, end: 20170420
  3. COVERSYL /00790703/ [Concomitant]
     Active Substance: PERINDOPRIL
     Indication: ACUTE CORONARY SYNDROME
     Dosage: 10 MG, 1X/DAY
     Route: 048
  4. CARDENSIEL [Concomitant]
     Active Substance: BISOPROLOL FUMARATE
     Indication: ACUTE CORONARY SYNDROME
     Dosage: 1.25 MG, 1X/DAY
     Route: 048
  5. NATISPRAY [Concomitant]
     Active Substance: NITROGLYCERIN
     Indication: ACUTE CORONARY SYNDROME
     Dosage: 0.3 MG, DAILY
     Route: 060
     Dates: start: 201702
  6. KARDEGIC [Concomitant]
     Active Substance: ASPIRIN LYSINE
     Indication: ACUTE CORONARY SYNDROME
     Dosage: 75 MG, 1X/DAY
     Route: 048
     Dates: start: 201702
  7. PREVISCAN /00789001/ [Suspect]
     Active Substance: FLUINDIONE
     Indication: ACUTE CORONARY SYNDROME
     Dosage: 0.5 DF, 1X/DAY
     Route: 048
     Dates: start: 201703, end: 20170420
  8. TAHOR [Suspect]
     Active Substance: ATORVASTATIN CALCIUM
     Indication: ACUTE CORONARY SYNDROME
     Dosage: 80 MG, 1X/DAY
     Route: 048
     Dates: start: 201702, end: 20170420
  9. DUOPLAVIN [Suspect]
     Active Substance: ASPIRIN\CLOPIDOGREL
     Indication: ACUTE CORONARY SYNDROME
     Dosage: 1 DF (75 MG/75 MG), 1X/DAY
     Route: 048
     Dates: start: 201702, end: 20170420

REACTIONS (4)
  - Agranulocytosis [Recovered/Resolved]
  - Sepsis [Unknown]
  - Inflammation [Unknown]
  - Cytopenia [Unknown]

NARRATIVE: CASE EVENT DATE: 20170404
